FAERS Safety Report 21473769 (Version 1)
Quarter: 2022Q4

REPORT INFORMATION
  Report Type: Spontaneous
  Country: US (occurrence: US)
  Receive Date: 20221018
  Receipt Date: 20221018
  Transmission Date: 20230112
  Serious: Yes (Death, Other)
  Sender: FDA-Public Use
  Company Number: US-NAPPMUNDI-GBR-2022-0102212

PATIENT
  Age: 2 Year
  Sex: Female

DRUGS (2)
  1. MORPHINE SULFATE [Suspect]
     Active Substance: MORPHINE SULFATE
     Indication: Product used for unknown indication
     Dosage: UNK
     Route: 065
  2. FENTANYL [Suspect]
     Active Substance: FENTANYL
     Indication: Product used for unknown indication
     Dosage: UNK
     Route: 065

REACTIONS (8)
  - Toxicity to various agents [Fatal]
  - Hypotension [Fatal]
  - Bradycardia [Fatal]
  - Bradypnoea [Fatal]
  - Coma [Fatal]
  - Depressed level of consciousness [Fatal]
  - Metabolic acidosis [Fatal]
  - Cardiac arrest [Fatal]
